FAERS Safety Report 4501448-7 (Version None)
Quarter: 2004Q4

REPORT INFORMATION
  Report Type: 
  Country: None (occurrence: None)
  Receive Date: 20041110
  Receipt Date: 20041026
  Transmission Date: 20050328
  Serious: Yes (Hospitalization, Other)
  Sender: FDA-Public Use
  Company Number: USA-2004-0013500

PATIENT
  Age: 53 Year
  Sex: Female

DRUGS (6)
  1. OXYCONTIN [Suspect]
     Dates: start: 20001001, end: 20030301
  2. OXYCODONE HCL [Suspect]
     Dates: start: 20001001, end: 20030301
  3. PERCOCET [Suspect]
     Dates: start: 20001001, end: 20030301
  4. DETROL [Concomitant]
  5. PRILOSEC [Concomitant]
  6. NEURONTIN [Concomitant]

REACTIONS (9)
  - AFFECT LABILITY [None]
  - ANGER [None]
  - ANXIETY [None]
  - DEPENDENCE [None]
  - DRUG DEPENDENCE [None]
  - MENTAL DISORDER [None]
  - MOOD SWINGS [None]
  - POLYSUBSTANCE ABUSE [None]
  - SUICIDAL IDEATION [None]
